FAERS Safety Report 6408215-8 (Version None)
Quarter: 2009Q4

REPORT INFORMATION
  Report Type: 
  Country: None (occurrence: None)
  Receive Date: 20091019
  Receipt Date: 20091008
  Transmission Date: 20100525
  Serious: Yes (Hospitalization)
  Sender: FDA-Public Use
  Company Number: GXKR2009US11113

PATIENT
  Age: 58 Year
  Sex: Female

DRUGS (3)
  1. NAFCILLIN [Suspect]
     Indication: PSOAS ABSCESS
     Dosage: 2 G, Q4H, INTRAVENOUS
     Route: 042
  2. NAFCILLIN [Suspect]
     Indication: STAPHYLOCOCCAL ABSCESS
     Dosage: 2 G, Q4H, INTRAVENOUS
     Route: 042
  3. RIFAMPICIN [Concomitant]

REACTIONS (3)
  - ASTHENIA [None]
  - BLOOD BICARBONATE INCREASED [None]
  - HYPOKALAEMIA [None]
